FAERS Safety Report 25997031 (Version 1)
Quarter: 2025Q4

REPORT INFORMATION
  Report Type: Report from Study
  Country: KW (occurrence: KW)
  Receive Date: 20251104
  Receipt Date: 20251104
  Transmission Date: 20260118
  Serious: Yes (Other)
  Sender: EMD SERONO INC
  Company Number: KW-Merck Healthcare KGaA-2025054943

PATIENT
  Age: 44 Year
  Sex: Female

DRUGS (1)
  1. MAVENCLAD [Suspect]
     Active Substance: CLADRIBINE
     Indication: Multiple sclerosis
     Dates: start: 20250918

REACTIONS (2)
  - Angina pectoris [Recovering/Resolving]
  - Pain in extremity [Unknown]
